FAERS Safety Report 10892730 (Version 1)
Quarter: 2015Q1

REPORT INFORMATION
  Report Type: Spontaneous
  Country: TR (occurrence: TR)
  Receive Date: 20150306
  Receipt Date: 20150306
  Transmission Date: 20150721
  Serious: Yes (Life-Threatening, Hospitalization, Other)
  Sender: FDA-Public Use
  Company Number: TR-WATSON-2015-04646

PATIENT
  Age: 55 Year
  Sex: Female

DRUGS (2)
  1. PREDNISOLONE (UNKNOWN) [Suspect]
     Active Substance: PREDNISOLONE
     Indication: RHEUMATOID ARTHRITIS
     Dosage: 10 MG, DAILY
     Route: 065
  2. METHOTREXATE (METHOTREXATE SODIUM) [Suspect]
     Active Substance: METHOTREXATE SODIUM
     Indication: RHEUMATOID ARTHRITIS
     Dosage: 15 MG, 1/WEEK
     Route: 065

REACTIONS (6)
  - Acute hepatic failure [None]
  - Hepatotoxicity [None]
  - Encephalopathy [None]
  - Hepatitis cholestatic [Recovered/Resolved]
  - Liver transplant [Unknown]
  - Hepatitis B [Unknown]
